FAERS Safety Report 16533464 (Version 1)
Quarter: 2019Q3

REPORT INFORMATION
  Report Type: Spontaneous
  Country: US (occurrence: US)
  Receive Date: 20190523
  Receipt Date: 20190523
  Transmission Date: 20191004
  Serious: Yes (Hospitalization)
  Sender: FDA-Public Use
  Company Number: None

PATIENT
  Age: 78 Year
  Sex: Male
  Weight: 74.1 kg

DRUGS (2)
  1. ETOPOSIDE (VP-16) [Suspect]
     Active Substance: ETOPOSIDE
     Dates: end: 20190426
  2. CISPLATIN. [Suspect]
     Active Substance: CISPLATIN
     Dates: end: 20190430

REACTIONS (2)
  - Hypotension [None]
  - Heart rate increased [None]

NARRATIVE: CASE EVENT DATE: 20190512
